FAERS Safety Report 7731137-7 (Version None)
Quarter: 2011Q3

REPORT INFORMATION
  Report Type: 
  Country: None (occurrence: None)
  Receive Date: 20110906
  Receipt Date: 20110906
  Transmission Date: 20111222
  Serious: No
  Sender: FDA-Public Use
  Company Number: None

PATIENT
  Sex: Female
  Weight: 88.904 kg

DRUGS (1)
  1. CYMBALTA [Suspect]
     Indication: FIBROMYALGIA
     Dosage: 1 CAP
     Route: 048
     Dates: start: 20050601, end: 20110822

REACTIONS (17)
  - ARTHRALGIA [None]
  - PAIN IN EXTREMITY [None]
  - HEADACHE [None]
  - DIARRHOEA [None]
  - GAIT DISTURBANCE [None]
  - VISION BLURRED [None]
  - DIZZINESS [None]
  - HOT FLUSH [None]
  - FEELING ABNORMAL [None]
  - PAIN [None]
  - WEIGHT INCREASED [None]
  - INFLUENZA LIKE ILLNESS [None]
  - NAUSEA [None]
  - DRUG WITHDRAWAL SYNDROME [None]
  - ABNORMAL DREAMS [None]
  - OEDEMA PERIPHERAL [None]
  - ANHEDONIA [None]
